FAERS Safety Report 9670401 (Version 1)
Quarter: 2013Q4

REPORT INFORMATION
  Report Type: Spontaneous
  Country: US (occurrence: US)
  Receive Date: 20131105
  Receipt Date: 20131105
  Transmission Date: 20140711
  Serious: Yes (Other)
  Sender: FDA-Public Use
  Company Number: US-PFIZER INC-2013311932

PATIENT
  Age: 82 Year
  Sex: Male

DRUGS (3)
  1. REVATIO [Suspect]
     Dosage: UNK
  2. TYVASO [Suspect]
     Dosage: UNK
  3. LEATIRIS [Suspect]
     Dosage: 10 MG, 1X/DAY
     Route: 048

REACTIONS (7)
  - Dyspnoea [Unknown]
  - Pleural effusion [Unknown]
  - Pericardial effusion [Unknown]
  - Diarrhoea [Unknown]
  - Ageusia [Unknown]
  - Faecal incontinence [Unknown]
  - Nasal congestion [Unknown]
